FAERS Safety Report 16584892 (Version 2)
Quarter: 2019Q3

REPORT INFORMATION
  Report Type: Spontaneous
  Country: DE (occurrence: DE)
  Receive Date: 20190717
  Receipt Date: 20190913
  Transmission Date: 20191004
  Serious: Yes (Hospitalization, Other)
  Sender: FDA-Public Use
  Company Number: DE-TEVA-2019-DE-1078447

PATIENT
  Sex: Female
  Weight: 70 kg

DRUGS (1)
  1. ENALAPRIL COMP. ABZ 10/25 [Suspect]
     Active Substance: ENALAPRIL\HYDROCHLOROTHIAZIDE
     Indication: HYPERTONIA
     Dosage: CONTAINS 10 MG ENALAPRIL AND 25 MG HYDROCHLOROTHIAZIDE, USED FOR 11 YEARS
     Route: 048

REACTIONS (1)
  - Basal cell carcinoma [Not Recovered/Not Resolved]

NARRATIVE: CASE EVENT DATE: 2011
